FAERS Safety Report 4718463-0 (Version None)
Quarter: 2005Q3

REPORT INFORMATION
  Report Type: 
  Country: None (occurrence: None)
  Receive Date: 20050719
  Receipt Date: 20050413
  Transmission Date: 20060218
  Serious: Yes (Hospitalization)
  Sender: FDA-Public Use
  Company Number: 2005024309

PATIENT
  Age: 38 Year
  Sex: Male
  Weight: 77.1115 kg

DRUGS (2)
  1. CELEBREX [Suspect]
     Indication: ARTHRALGIA
     Dosage: (200 MG, UNKNOWN), ORAL
     Route: 048
     Dates: start: 19980101
  2. CELEBREX [Suspect]
     Indication: TENDONITIS
     Dosage: (200 MG, UNKNOWN), ORAL
     Route: 048
     Dates: start: 19980101

REACTIONS (3)
  - ANGINA PECTORIS [None]
  - MYOCARDIAL INFARCTION [None]
  - PAIN [None]
